FAERS Safety Report 6279175-8 (Version None)
Quarter: 2009Q3

REPORT INFORMATION
  Report Type: 
  Country: None (occurrence: None)
  Receive Date: 20090723
  Receipt Date: 20090715
  Transmission Date: 20100115
  Serious: Yes (Death)
  Sender: FDA-Public Use
  Company Number: ES-ROCHE-643875

PATIENT
  Age: 61 Year
  Sex: Male

DRUGS (3)
  1. CAPECITABINE [Suspect]
     Route: 065
     Dates: start: 20081125, end: 20081130
  2. CISPLATIN [Suspect]
     Route: 042
     Dates: start: 20081125, end: 20081125
  3. EPIRUBICIN HYDROCHLORIDE [Suspect]
     Route: 065
     Dates: start: 20081125, end: 20081125

REACTIONS (3)
  - GASTROINTESTINAL TOXICITY [None]
  - MUCOSAL INFLAMMATION [None]
  - NEUTROPENIA [None]
